FAERS Safety Report 7006559-2 (Version None)
Quarter: 2010Q3

REPORT INFORMATION
  Report Type: 
  Country: None (occurrence: None)
  Receive Date: 20100921
  Receipt Date: 20100427
  Transmission Date: 20110219
  Serious: No
  Sender: FDA-Public Use
  Company Number: US-WYE-H14986710

PATIENT
  Age: 10 Year
  Sex: Male

DRUGS (1)
  1. XYNTHA [Suspect]

REACTIONS (3)
  - SKIN LACERATION [None]
  - SYRINGE ISSUE [None]
  - WRONG TECHNIQUE IN DRUG USAGE PROCESS [None]
